FAERS Safety Report 23744609 (Version 1)
Quarter: 2024Q2

REPORT INFORMATION
  Report Type: Spontaneous
  Country: US (occurrence: US)
  Receive Date: 20240415
  Receipt Date: 20240415
  Transmission Date: 20240716
  Serious: Yes (Other)
  Sender: FDA-Public Use
  Company Number: US-002147023-NVSC2024US076778

PATIENT
  Age: 78 Year
  Sex: Male

DRUGS (6)
  1. EVEROLIMUS [Suspect]
     Active Substance: EVEROLIMUS
     Indication: Anaplastic meningioma
     Dosage: UNK, QD
     Route: 065
     Dates: start: 202102
  2. OCTREOTIDE [Suspect]
     Active Substance: OCTREOTIDE\OCTREOTIDE ACETATE
     Indication: Anaplastic meningioma
     Dosage: UNK (MONTHLY)
     Route: 065
     Dates: start: 202102
  3. OCTREOTIDE [Suspect]
     Active Substance: OCTREOTIDE\OCTREOTIDE ACETATE
  4. OCTREOTIDE [Suspect]
     Active Substance: OCTREOTIDE\OCTREOTIDE ACETATE
  5. LUTATHERA [Suspect]
     Active Substance: LUTETIUM OXODOTREOTIDE LU-177
     Indication: Anaplastic meningioma
     Dosage: EVERY 2 MONTHS FOR  A TOTAL OF 4 INFUSIONS
     Route: 065
     Dates: end: 202204
  6. AVASTIN [Suspect]
     Active Substance: BEVACIZUMAB
     Indication: Anaplastic meningioma
     Dosage: 10 MG/KG, Q2W
     Route: 065

REACTIONS (5)
  - Malignant neoplasm progression [Unknown]
  - Anaplastic meningioma [Unknown]
  - Hepatic cancer metastatic [Unknown]
  - Anaemia [Unknown]
  - Product use in unapproved indication [Unknown]
